FAERS Safety Report 11044078 (Version 2)
Quarter: 2015Q3

REPORT INFORMATION
  Report Type: Spontaneous
  Country: US (occurrence: None)
  Receive Date: 20150415
  Receipt Date: 20150706
  Transmission Date: 20151125
  Serious: Yes (Other)
  Sender: FDA-Public Use
  Company Number: US2015047057

PATIENT
  Age: 61 Year
  Sex: Male
  Weight: 84.4 kg

DRUGS (10)
  1. TRUVADA [Suspect]
     Active Substance: EMTRICITABINE\TENOFOVIR DISOPROXIL FUMARATE
     Indication: PRODUCT USED FOR UNKNOWN INDICATION
     Route: 048
     Dates: start: 20140305, end: 20150305
  2. ITRACONAZOLE (ITRACONAZOLE) [Suspect]
     Active Substance: ITRACONAZOLE
     Indication: HISTOPLASMOSIS
  3. ZIAGEN (ABACAVIR SULPHATE) [Concomitant]
  4. AZITHROMYCIN [Concomitant]
     Active Substance: AZITHROMYCIN ANHYDROUS
  5. ITRACONAZOLE (ITRACONAZOLE) [Suspect]
     Active Substance: ITRACONAZOLE
     Indication: PROPHYLAXIS
  6. EMTRIVA (EMTRICITABINE) [Concomitant]
  7. TIVICAY [Suspect]
     Active Substance: DOLUTEGRAVIR SODIUM
     Indication: PRODUCT USED FOR UNKNOWN INDICATION
     Route: 048
     Dates: start: 20141002, end: 20150521
  8. BACTRIM DS [Suspect]
     Active Substance: SULFAMETHOXAZOLE\TRIMETHOPRIM
     Indication: PRODUCT USED FOR UNKNOWN INDICATION
     Route: 048
     Dates: start: 20040101, end: 20150325
  9. ISENTRESS [Concomitant]
     Active Substance: RALTEGRAVIR POTASSIUM
  10. DAPSONE (DAPSONE) [Concomitant]

REACTIONS (4)
  - Nephrolithiasis [None]
  - Blood creatinine increased [None]
  - Glomerular filtration rate abnormal [None]
  - Renal failure [None]

NARRATIVE: CASE EVENT DATE: 20150225
